FAERS Safety Report 24311400 (Version 2)
Quarter: 2024Q3

REPORT INFORMATION
  Report Type: Spontaneous
  Country: DE (occurrence: DE)
  Receive Date: 20240912
  Receipt Date: 20240927
  Transmission Date: 20241016
  Serious: Yes (Other)
  Sender: TEVA
  Company Number: DE-TEVA-VS-3241096

PATIENT
  Age: 65 Year
  Sex: Male

DRUGS (4)
  1. FLUOROURACIL [Suspect]
     Active Substance: FLUOROURACIL
     Indication: Gastric cancer stage III
     Dosage: WITH 50% DOSE REDUCTION (4CYCLES) INFUSION
     Route: 050
  2. DOCETAXEL [Suspect]
     Active Substance: DOCETAXEL\DOCETAXEL ANHYDROUS
     Indication: Gastric cancer stage III
     Dosage: 4 CYCLES
     Route: 065
  3. LEUCOVORIN [Suspect]
     Active Substance: LEUCOVORIN\LEUCOVORIN CALCIUM
     Indication: Gastric cancer stage III
     Dosage: 4 CYCLES
     Route: 065
  4. OXALIPLATIN [Suspect]
     Active Substance: OXALIPLATIN
     Indication: Gastric cancer stage III
     Dosage: 4 CYCLES
     Route: 065

REACTIONS (3)
  - Polyneuropathy [Unknown]
  - Nausea [Unknown]
  - Decreased appetite [Unknown]
